FAERS Safety Report 7888397-1 (Version None)
Quarter: 2011Q4

REPORT INFORMATION
  Report Type: 
  Country: None (occurrence: None)
  Receive Date: 20111103
  Receipt Date: 20111021
  Transmission Date: 20120403
  Serious: Yes (Disabling)
  Sender: FDA-Public Use
  Company Number: PHFR2011GB06116

PATIENT
  Age: 76 Year
  Sex: Male
  Weight: 85 kg

DRUGS (5)
  1. FLUOXETINE HCL [Concomitant]
     Indication: BIPOLAR DISORDER
     Dosage: 20 MG/DAY
     Route: 048
     Dates: start: 20000301
  2. TEGRETOL [Suspect]
     Dosage: 400 MG, QD
     Route: 065
  3. QUETIAPINE [Concomitant]
     Indication: MOOD SWINGS
  4. FLUOXETINE HCL [Concomitant]
     Indication: MOOD SWINGS
  5. QUETIAPINE [Concomitant]
     Indication: BIPOLAR DISORDER
     Dosage: 150 MG/DAY
     Route: 048
     Dates: start: 20000301

REACTIONS (2)
  - INSOMNIA [None]
  - DYSPEPSIA [None]
